FAERS Safety Report 6745635-6 (Version None)
Quarter: 2010Q2

REPORT INFORMATION
  Report Type: 
  Country: None (occurrence: None)
  Receive Date: 20100528
  Receipt Date: 20100520
  Transmission Date: 20101027
  Serious: Yes (Hospitalization)
  Sender: FDA-Public Use
  Company Number: FR-JNJFOC-20100508076

PATIENT
  Sex: Male

DRUGS (8)
  1. HALDOL [Suspect]
     Indication: ABNORMAL BEHAVIOUR
     Dosage: 10 DROPS TWICE A DAY
     Route: 048
     Dates: start: 20100414, end: 20100429
  2. HALDOL [Suspect]
     Dosage: 10 DROPS TWICE A DAY
     Route: 030
  3. MEMANTINE HCL [Suspect]
     Indication: DEMENTIA ALZHEIMER'S TYPE
     Route: 065
     Dates: end: 20100503
  4. ARICEPT [Suspect]
     Indication: DEMENTIA ALZHEIMER'S TYPE
     Route: 065
     Dates: end: 20100503
  5. CORGARD [Suspect]
     Indication: HYPERTENSION
     Route: 065
     Dates: end: 20100429
  6. ALPRAZOLAM [Suspect]
     Indication: ABNORMAL BEHAVIOUR
     Dates: start: 20100414, end: 20100429
  7. KARDEGIC [Suspect]
     Indication: ISCHAEMIC HEART DISEASE PROPHYLAXIS
     Route: 065
     Dates: end: 20100429
  8. EQUANIL [Concomitant]
     Route: 065

REACTIONS (3)
  - LYMPHOPENIA [None]
  - NEUTROPENIA [None]
  - THROMBOCYTOPENIA [None]
